FAERS Safety Report 6904746-2 (Version None)
Quarter: 2010Q3

REPORT INFORMATION
  Report Type: 
  Country: None (occurrence: None)
  Receive Date: 20100804
  Receipt Date: 20100721
  Transmission Date: 20110219
  Serious: No
  Sender: FDA-Public Use
  Company Number: US-BIOGENIDEC-2010BI024621

PATIENT
  Sex: Female

DRUGS (3)
  1. AVONEX [Suspect]
     Indication: MULTIPLE SCLEROSIS
     Route: 030
     Dates: start: 20100622
  2. FLUDROCORTISONE [Concomitant]
     Indication: BLOOD PRESSURE ABNORMAL
     Dates: start: 20090801
  3. HYDROCORTIZONE [Concomitant]
     Indication: BLOOD PRESSURE ABNORMAL
     Dates: start: 20090801

REACTIONS (19)
  - ARTHRALGIA [None]
  - BALANCE DISORDER [None]
  - BONE PAIN [None]
  - BRADYCARDIA [None]
  - CHILLS [None]
  - CONTUSION [None]
  - DYSSTASIA [None]
  - EYE ROLLING [None]
  - FALL [None]
  - HEADACHE [None]
  - HYPERHIDROSIS [None]
  - HYPOTENSION [None]
  - JOINT INJURY [None]
  - MULTIPLE SCLEROSIS RELAPSE [None]
  - PALLOR [None]
  - PARAESTHESIA [None]
  - PYREXIA [None]
  - SYNCOPE [None]
  - TREMOR [None]
